FAERS Safety Report 16006817 (Version 1)
Quarter: 2019Q1

REPORT INFORMATION
  Report Type: Spontaneous
  Country: US (occurrence: US)
  Receive Date: 20190222
  Receipt Date: 20190222
  Transmission Date: 20190418
  Serious: No
  Sender: FDA-Public Use
  Company Number: US-ASTRAZENECA-2019SE17766

PATIENT
  Age: 47 Year
  Sex: Female
  Weight: 100.7 kg

DRUGS (1)
  1. BYDUREON [Suspect]
     Active Substance: EXENATIDE
     Indication: TYPE 2 DIABETES MELLITUS
     Route: 058
     Dates: start: 201702

REACTIONS (2)
  - Nephrolithiasis [Unknown]
  - Injection site nodule [Recovering/Resolving]

NARRATIVE: CASE EVENT DATE: 201702
